FAERS Safety Report 8174573-X (Version None)
Quarter: 2012Q1

REPORT INFORMATION
  Report Type: 
  Country: None (occurrence: None)
  Receive Date: 20120227
  Receipt Date: 20120210
  Transmission Date: 20120608
  Serious: Yes (Other)
  Sender: FDA-Public Use
  Company Number: 1000028366

PATIENT
  Age: 39 Year
  Sex: Male

DRUGS (4)
  1. LISINOPRIL [Concomitant]
  2. VIIBRYD [Suspect]
     Indication: ANXIETY
     Dosage: 10 MG (10 MG, 1 IN 1 D),ORAL, 20 MG (20 MG, 1 IN 1 D),ORAL,40 MG (40 MG, 1 IN 1 D),ORAL
     Route: 048
     Dates: start: 20120112, end: 20120118
  3. HYDROCHLOROTHIAZIDE [Concomitant]
  4. PRAVASTATIN [Concomitant]

REACTIONS (4)
  - OFF LABEL USE [None]
  - IMPRISONMENT [None]
  - AGGRESSION [None]
  - MEMORY IMPAIRMENT [None]
